FAERS Safety Report 9529386 (Version 1)
Quarter: 2013Q1

REPORT INFORMATION
  Report Type: Spontaneous
  Country: US (occurrence: None)
  Receive Date: 20130329
  Receipt Date: 20130329
  Transmission Date: 20140127
  Serious: No
  Sender: FDA-Public Use
  Company Number: 1000042759

PATIENT
  Age: 53 Year
  Sex: Female

DRUGS (10)
  1. LINZESS (LINACLOTIDE) (145 MCG, CAPSULES) [Suspect]
     Indication: CONSTIPATION
     Dosage: 145 MCG, 1 IN 1 D
     Route: 048
     Dates: start: 20130215
  2. NEXIUM [Concomitant]
  3. ZANTAC [Concomitant]
  4. DEXILANT [Concomitant]
  5. TRAMADOL [Concomitant]
  6. TRAZODONE [Concomitant]
  7. SERQUEL [Concomitant]
  8. GLUCOPHAE [Concomitant]
  9. VISTARIL [Concomitant]
  10. LIPITOR [Concomitant]

REACTIONS (2)
  - Abdominal distension [None]
  - Gastrointestinal pain [None]
